FAERS Safety Report 8784550 (Version 1)
Quarter: 2012Q4

REPORT INFORMATION
  Report Type: Spontaneous
  Country: US (occurrence: None)
  Receive Date: 20120831
  Receipt Date: 20120831
  Transmission Date: 20130627
  Serious: Yes (Other)
  Sender: FDA-Public Use
  Company Number: 2012P1055065

PATIENT
  Age: 62 Year
  Sex: Male

DRUGS (7)
  1. VANCOMYCIN (NO PREF. NAME) [Suspect]
  2. PIPERACILLIN-TAZOBACTAM (NO PREF. NAME) [Suspect]
  3. ASPIRIN [Concomitant]
  4. GABAPENTIN [Concomitant]
  5. PAROXETINE [Concomitant]
  6. RANITIDINE [Concomitant]
  7. TRAMADOL [Concomitant]

REACTIONS (2)
  - Leg amputation [None]
  - Acute generalised exanthematous pustulosis [None]
